FAERS Safety Report 16791666 (Version 4)
Quarter: 2020Q2

REPORT INFORMATION
  Report Type: Report from Study
  Country: DE (occurrence: DE)
  Receive Date: 20190910
  Receipt Date: 20200403
  Transmission Date: 20200713
  Serious: Yes (Hospitalization, Other)
  Sender: FDA-Public Use
  Company Number: DE-ACTELION-A-CH2019-195056

PATIENT
  Age: 68 Year
  Sex: Female
  Weight: 62 kg

DRUGS (12)
  1. TADALAFIL. [Concomitant]
     Active Substance: TADALAFIL
     Dosage: 40 UNK
     Dates: start: 20190918
  2. ATORVASTATIN [Concomitant]
     Active Substance: ATORVASTATIN
     Indication: HYPERLIPIDAEMIA
     Dosage: UNK
     Route: 048
  3. TADALAFIL. [Concomitant]
     Active Substance: TADALAFIL
     Indication: PULMONARY ARTERIAL HYPERTENSION
     Dosage: 20 UNK
     Dates: start: 20190710
  4. DEKRISTOL [Concomitant]
     Active Substance: CHOLECALCIFEROL
     Indication: PROPHYLAXIS
     Dosage: UNK
     Route: 048
  5. APIXABAN [Concomitant]
     Active Substance: APIXABAN
     Indication: ATRIAL FIBRILLATION
     Dosage: UNK
     Route: 048
     Dates: start: 2013
  6. TADALAFIL. [Concomitant]
     Active Substance: TADALAFIL
     Dosage: 40 UNK, QD
     Dates: start: 20190717
  7. OPSUMIT [Suspect]
     Active Substance: MACITENTAN
     Indication: PULMONARY ARTERIAL HYPERTENSION
     Dosage: 10 MG, QD
     Route: 048
     Dates: start: 20190709
  8. LATANOPROST. [Concomitant]
     Active Substance: LATANOPROST
     Indication: INTRAOCULAR PRESSURE INCREASED
     Dosage: UNK
     Route: 031
  9. VERAPAMIL [Concomitant]
     Active Substance: VERAPAMIL HYDROCHLORIDE
     Indication: HYPERTENSION
     Dosage: UNK
     Route: 048
  10. TORASEMID [Concomitant]
     Active Substance: TORSEMIDE
     Dosage: UNK
     Route: 048
  11. PANTOPRAZOL [Concomitant]
     Active Substance: PANTOPRAZOLE SODIUM
     Dosage: UNK
     Route: 048
  12. JODTHYROX [Concomitant]
     Active Substance: LEVOTHYROXINE SODIUM\POTASSIUM IODIDE
     Indication: THYROID DISORDER
     Dosage: UNK
     Route: 048

REACTIONS (17)
  - Glomerular filtration rate decreased [Recovered/Resolved]
  - Blood iron decreased [Recovered/Resolved]
  - Transfusion [Unknown]
  - Transferrin saturation decreased [Recovered/Resolved]
  - Red blood cell count decreased [Recovered/Resolved]
  - Renal impairment [Recovered/Resolved]
  - Iron deficiency anaemia [Recovered/Resolved]
  - Oedema peripheral [Recovered/Resolved]
  - Blood creatinine increased [Recovered/Resolved]
  - Serum ferritin decreased [Recovered/Resolved]
  - Dyspnoea exertional [Unknown]
  - Electrolyte imbalance [Not Recovered/Not Resolved]
  - Haemoglobin decreased [Recovered/Resolved]
  - Weight increased [Unknown]
  - Blood uric acid increased [Recovered/Resolved]
  - Tooth extraction [Unknown]
  - Periodontitis [Not Recovered/Not Resolved]

NARRATIVE: CASE EVENT DATE: 20190821
